FAERS Safety Report 17527899 (Version 2)
Quarter: 2020Q1

REPORT INFORMATION
  Report Type: Spontaneous
  Country: US (occurrence: US)
  Receive Date: 20200311
  Receipt Date: 20200313
  Transmission Date: 20200409
  Serious: Yes (Other)
  Sender: FDA-Public Use
  Company Number: US-PFIZER INC-2020104298

PATIENT
  Age: 45 Year
  Sex: Female

DRUGS (2)
  1. ACYCLOVIR [ACICLOVIR] [Concomitant]
     Active Substance: ACYCLOVIR
     Indication: MENINGITIS VIRAL
     Dosage: UNK
  2. METHYLPREDNISOLONE SODIUM SUCCINATE. [Suspect]
     Active Substance: METHYLPREDNISOLONE SODIUM SUCCINATE
     Dosage: UNK
     Route: 042

REACTIONS (2)
  - Hypovolaemic shock [Recovering/Resolving]
  - Gastrointestinal haemorrhage [Recovering/Resolving]
